FAERS Safety Report 19021022 (Version 1)
Quarter: 2021Q1

REPORT INFORMATION
  Report Type: Spontaneous
  Country: DK (occurrence: DK)
  Receive Date: 20210317
  Receipt Date: 20210317
  Transmission Date: 20210420
  Serious: Yes (Other)
  Sender: FDA-Public Use
  Company Number: DK-PFIZER INC-2021261460

PATIENT
  Age: 36 Year
  Sex: Female

DRUGS (7)
  1. OMEGA?3 FATTY ACIDS [Concomitant]
     Active Substance: OMEGA-3 FATTY ACIDS
  2. DICLOFENAC [Concomitant]
     Active Substance: DICLOFENAC
     Indication: PRODUCT USED FOR UNKNOWN INDICATION
  3. HUSK FIBRE [Concomitant]
  4. D VITAMIN NATURE MADE [Concomitant]
  5. ELIDEL [Suspect]
     Active Substance: PIMECROLIMUS
     Dosage: UNK
  6. DIFLUCAN [Suspect]
     Active Substance: FLUCONAZOLE
     Dosage: UNK
  7. YASMIN [Suspect]
     Active Substance: DROSPIRENONE\ETHINYL ESTRADIOL
     Dosage: UNK
     Route: 048
     Dates: start: 19990701, end: 20190716

REACTIONS (5)
  - Pain in extremity [Unknown]
  - Peripheral artery thrombosis [Unknown]
  - Eczema [Unknown]
  - Drug ineffective [Unknown]
  - Pregnancy on oral contraceptive [Unknown]
